FAERS Safety Report 21579694 (Version 3)
Quarter: 2022Q4

REPORT INFORMATION
  Report Type: Report from Study
  Country: US (occurrence: US)
  Receive Date: 20221110
  Receipt Date: 20221201
  Transmission Date: 20230112
  Serious: Yes (Hospitalization)
  Sender: FDA-Public Use
  Company Number: US-JNJFOC-20221110620

PATIENT
  Age: 62 Year
  Sex: Male
  Weight: 113 kg

DRUGS (19)
  1. CILTACABTAGENE AUTOLEUCEL [Suspect]
     Active Substance: CILTACABTAGENE AUTOLEUCEL
     Indication: Plasma cell myeloma
     Dosage: 0.8 X 10^6 CAR-T POSITIVE VIABLE CELLS
     Route: 042
     Dates: start: 20221018, end: 20221018
  2. DARATUMUMAB [Concomitant]
     Active Substance: DARATUMUMAB
     Indication: Plasma cell myeloma
     Route: 058
     Dates: start: 20220815, end: 20220829
  3. DEXAMETHASONE [Concomitant]
     Active Substance: DEXAMETHASONE
     Indication: Plasma cell myeloma
     Dates: start: 20220815, end: 20220829
  4. LENALIDOMIDE [Concomitant]
     Active Substance: LENALIDOMIDE
     Indication: Plasma cell myeloma
     Route: 048
     Dates: start: 20220815, end: 20220904
  5. CYCLOPHOSPHAMIDE [Concomitant]
     Active Substance: CYCLOPHOSPHAMIDE
     Indication: Plasma cell myeloma
     Route: 042
     Dates: start: 20221012, end: 20221014
  6. FLUDARABINE [Concomitant]
     Active Substance: FLUDARABINE PHOSPHATE
     Indication: Plasma cell myeloma
     Route: 042
     Dates: start: 20221012, end: 20221014
  7. CALCIUM PHOSPHATE [Concomitant]
     Active Substance: CALCIUM PHOSPHATE
     Indication: General physical condition
     Route: 048
     Dates: start: 202206
  8. VITAMIN D3 [Concomitant]
     Active Substance: CHOLECALCIFEROL
     Indication: General physical condition
     Route: 048
     Dates: start: 2020
  9. VITAMINS [Concomitant]
     Active Substance: VITAMINS
     Indication: General physical condition
     Route: 048
     Dates: start: 2012
  10. PROBIOTIC FEMINA [Concomitant]
     Indication: General physical condition
     Route: 048
     Dates: start: 202204
  11. NASACORT [Concomitant]
     Active Substance: TRIAMCINOLONE ACETONIDE
     Indication: Rhinitis allergic
     Route: 045
  12. ASPIRIN [Concomitant]
     Active Substance: ASPIRIN
     Indication: Thrombosis prophylaxis
     Route: 048
     Dates: start: 20220307
  13. MELATONIN [Concomitant]
     Active Substance: MELATONIN
     Indication: Insomnia
     Route: 048
     Dates: start: 20220307
  14. ONDANSETRON [Concomitant]
     Active Substance: ONDANSETRON
     Indication: Nausea
     Route: 048
     Dates: start: 20220307
  15. APREPITANT [Concomitant]
     Active Substance: APREPITANT
     Indication: Nausea
     Route: 048
     Dates: start: 20220307
  16. ACYCLOVIR [Concomitant]
     Active Substance: ACYCLOVIR
     Indication: Antiviral prophylaxis
     Route: 048
     Dates: start: 20220307
  17. ZOLPIDEM TARTRATE [Concomitant]
     Active Substance: ZOLPIDEM TARTRATE
     Indication: Insomnia
     Route: 048
     Dates: start: 20220307
  18. LORAZEPAM [Concomitant]
     Active Substance: LORAZEPAM
     Indication: Nausea
     Route: 048
     Dates: start: 20220307
  19. ZOMETA [Concomitant]
     Active Substance: ZOLEDRONIC ACID
     Indication: Osteoporosis prophylaxis
     Route: 042
     Dates: start: 20220411

REACTIONS (3)
  - Back pain [Recovering/Resolving]
  - Paraesthesia [Recovering/Resolving]
  - Pain in extremity [Recovering/Resolving]

NARRATIVE: CASE EVENT DATE: 20221102
